FAERS Safety Report 10652392 (Version 6)
Quarter: 2015Q1

REPORT INFORMATION
  Report Type: Report from Study
  Country: DE (occurrence: DE)
  Receive Date: 20141215
  Receipt Date: 20150326
  Transmission Date: 20150720
  Serious: Yes (Other)
  Sender: FDA-Public Use
  Company Number: DE-SA-2014SA157928

PATIENT
  Age: 52 Year
  Sex: Female

DRUGS (4)
  1. VENLAFAXINE [Concomitant]
     Active Substance: VENLAFAXINE HYDROCHLORIDE
     Indication: DEPRESSION
     Route: 048
  2. AUBAGIO [Suspect]
     Active Substance: TERIFLUNOMIDE
     Indication: MULTIPLE SCLEROSIS
     Route: 048
     Dates: start: 20141101
  3. VITAMIN D [Concomitant]
     Active Substance: CHOLECALCIFEROL
     Indication: VITAMIN D DEFICIENCY
     Route: 048
  4. AUBAGIO [Suspect]
     Active Substance: TERIFLUNOMIDE
     Indication: MULTIPLE SCLEROSIS
     Route: 048

REACTIONS (21)
  - Dizziness [Recovering/Resolving]
  - Blood pressure increased [Recovered/Resolved]
  - Irritable bowel syndrome [Not Recovered/Not Resolved]
  - Disturbance in attention [Unknown]
  - Hypoaesthesia [Not Recovered/Not Resolved]
  - Alopecia [Recovering/Resolving]
  - Dermatitis [Not Recovered/Not Resolved]
  - Hepatic enzyme increased [Unknown]
  - Otitis media [Not Recovered/Not Resolved]
  - Hair disorder [Not Recovered/Not Resolved]
  - Condition aggravated [Not Recovered/Not Resolved]
  - Ear pain [Recovered/Resolved]
  - Aneurysm repair [Unknown]
  - Feeling abnormal [Unknown]
  - Drug dose omission [Unknown]
  - Nervous system disorder [Not Recovered/Not Resolved]
  - Fatigue [Not Recovered/Not Resolved]
  - Dizziness [Unknown]
  - Gait disturbance [Not Recovered/Not Resolved]
  - Deafness unilateral [Not Recovered/Not Resolved]
  - Scar pain [Unknown]

NARRATIVE: CASE EVENT DATE: 2014
